FAERS Safety Report 8001501-X (Version None)
Quarter: 2011Q4

REPORT INFORMATION
  Report Type: 
  Country: None (occurrence: None)
  Receive Date: 20111219
  Receipt Date: 20111206
  Transmission Date: 20120403
  Serious: Yes (Hospitalization)
  Sender: FDA-Public Use
  Company Number: 2011P1009484

PATIENT
  Age: 63 Year
  Sex: Female
  Weight: 61.2356 kg

DRUGS (7)
  1. ZOLOFT [Concomitant]
  2. AMPHETAMINE SULFATE [Suspect]
     Indication: ATTENTION DEFICIT/HYPERACTIVITY DISORDER
     Dosage: TID
     Dates: start: 20110401, end: 20110401
  3. OBETROL [Suspect]
  4. DEXTROAMPHETAMINE SACCHRATE, AMPHETAMINE ASPARATE MONOHYDRATE, DEXTROA [Suspect]
     Indication: ATTENTION DEFICIT/HYPERACTIVITY DISORDER
     Dosage: 30 MG;TID;PO, 30 MG;TID;PO, 30 MG;TID, PO
     Route: 048
     Dates: start: 20110401, end: 20110630
  5. DEXTROAMPHETAMINE SACCHRATE, AMPHETAMINE ASPARATE MONOHYDRATE, DEXTROA [Suspect]
     Indication: ATTENTION DEFICIT/HYPERACTIVITY DISORDER
     Dosage: 30 MG;TID;PO, 30 MG;TID;PO, 30 MG;TID, PO
     Route: 048
     Dates: start: 20110705
  6. DEXTROAMPHETAMINE SACCHRATE, AMPHETAMINE ASPARATE MONOHYDRATE, DEXTROA [Suspect]
     Indication: ATTENTION DEFICIT/HYPERACTIVITY DISORDER
     Dosage: 30 MG;TID;PO, 30 MG;TID;PO, 30 MG;TID, PO
     Route: 048
     Dates: start: 20100401, end: 20110401
  7. DIAZEPAM [Concomitant]

REACTIONS (6)
  - VERTIGO [None]
  - PRODUCT SUBSTITUTION ISSUE [None]
  - STRESS [None]
  - NAUSEA [None]
  - ASTHENIA [None]
  - ILL-DEFINED DISORDER [None]
